FAERS Safety Report 5665132-9 (Version None)
Quarter: 2008Q1

REPORT INFORMATION
  Report Type: 
  Country: None (occurrence: None)
  Receive Date: 20080314
  Receipt Date: 20080312
  Transmission Date: 20080703
  Serious: Yes (Hospitalization)
  Sender: FDA-Public Use
  Company Number: DE-MERCK-0803DEU00042

PATIENT
  Age: 33 Year
  Sex: Male

DRUGS (2)
  1. FOSAMAX PLUS D [Suspect]
     Route: 048
     Dates: start: 20080101, end: 20080101
  2. CALCIUM (UNSPECIFIED) AND VITAMIN D (UNSPECIFIED) [Concomitant]
     Route: 048
     Dates: start: 20071001

REACTIONS (1)
  - CONVULSION [None]
